FAERS Safety Report 9255918 (Version 2)
Quarter: 2013Q2

REPORT INFORMATION
  Report Type: Spontaneous
  Country: US (occurrence: US)
  Receive Date: 20130425
  Receipt Date: 20130425
  Transmission Date: 20140414
  Serious: No
  Sender: FDA-Public Use
  Company Number: US-BAUSCH-2012BL001821

PATIENT
  Age: 60 Year
  Sex: Male

DRUGS (3)
  1. ALREX (LOTEPREDNOL ETABONATE OPHTHALMIC SUSPENSION 0.2%) [Suspect]
     Indication: OCULAR HYPERAEMIA
     Route: 047
     Dates: start: 201003, end: 201112
  2. ALREX (LOTEPREDNOL ETABONATE OPHTHALMIC SUSPENSION 0.2%) [Suspect]
     Indication: OFF LABEL USE
     Route: 047
     Dates: start: 201112, end: 201202
  3. ALREX (LOTEPREDNOL ETABONATE OPHTHALMIC SUSPENSION 0.2%) [Suspect]
     Route: 047
     Dates: start: 201202

REACTIONS (4)
  - Erythema [Recovered/Resolved]
  - Skin irritation [Recovered/Resolved]
  - Eye infection [Unknown]
  - Eye irritation [Unknown]
